FAERS Safety Report 4416354-6 (Version None)
Quarter: 2004Q3

REPORT INFORMATION
  Report Type: 
  Country: None (occurrence: None)
  Receive Date: 20040805
  Receipt Date: 20040729
  Transmission Date: 20050211
  Serious: Yes (Other)
  Sender: FDA-Public Use
  Company Number: PHFR2004GB03012

PATIENT
  Sex: Female

DRUGS (2)
  1. ZOLEDRONATE [Suspect]
     Dosage: 4MG, ONCE/SINGLE
     Route: 042
     Dates: start: 20030101
  2. ZOLEDRONATE [Suspect]
     Dosage: 4MG, ONCE/SINGLE
     Route: 042
     Dates: start: 20040101

REACTIONS (2)
  - ARTHRITIS [None]
  - PETIT MAL EPILEPSY [None]
